FAERS Safety Report 9341409 (Version 4)
Quarter: 2013Q3

REPORT INFORMATION
  Report Type: Spontaneous
  Country: US (occurrence: US)
  Receive Date: 20130611
  Receipt Date: 20130918
  Transmission Date: 20140515
  Serious: Yes (Hospitalization, Other)
  Sender: FDA-Public Use
  Company Number: US-BAYER-2013-069219

PATIENT
  Age: 49 Year
  Sex: Female
  Weight: 66.21 kg

DRUGS (6)
  1. MIRENA [Suspect]
     Indication: MENORRHAGIA
     Dosage: 20 MCG/24HR, CONT
     Route: 015
     Dates: start: 20121220, end: 20130513
  2. MIRENA [Suspect]
     Indication: MENSTRUATION IRREGULAR
  3. DHEA [Concomitant]
  4. PREGNENOLONE [Concomitant]
  5. 5-HYDROXYTRYPTOPHAN [Concomitant]
  6. DM [Concomitant]

REACTIONS (10)
  - Menorrhagia [None]
  - Vaginal haemorrhage [None]
  - Uterine leiomyoma [None]
  - Menstruation delayed [None]
  - Loss of consciousness [None]
  - Drug ineffective [None]
  - Abdominal pain [None]
  - Dizziness [None]
  - Nausea [None]
  - Off label use [None]
